FAERS Safety Report 8240816-7 (Version None)
Quarter: 2012Q1

REPORT INFORMATION
  Report Type: 
  Country: None (occurrence: None)
  Receive Date: 20120328
  Receipt Date: 20120319
  Transmission Date: 20120608
  Serious: Yes (Other)
  Sender: FDA-Public Use
  Company Number: PHHY2011NL102654

PATIENT
  Sex: Male
  Weight: 105 kg

DRUGS (2)
  1. TASIGNA [Suspect]
     Dosage: 400 MG, BID
     Route: 048
     Dates: start: 20060319
  2. TASIGNA [Suspect]
     Indication: CHRONIC MYELOID LEUKAEMIA
     Dosage: 400 MG, BID
     Route: 048
     Dates: start: 20060201, end: 20060305

REACTIONS (3)
  - BILE DUCT STONE [None]
  - ABDOMINAL DISCOMFORT [None]
  - PANCREATITIS [None]
